FAERS Safety Report 9478847 (Version 1)
Quarter: 2013Q3

REPORT INFORMATION
  Report Type: Spontaneous
  Country: US (occurrence: US)
  Receive Date: 20130827
  Receipt Date: 20130827
  Transmission Date: 20140515
  Serious: Yes (Hospitalization, Disabling, Other)
  Sender: FDA-Public Use
  Company Number: US-TEVA-428583USA

PATIENT
  Sex: Female

DRUGS (2)
  1. METOCLOPRAMIDE [Suspect]
     Indication: NAUSEA
  2. REGLAN [Suspect]
     Indication: NAUSEA

REACTIONS (11)
  - Tardive dyskinesia [Unknown]
  - Dyskinesia [Unknown]
  - Nervous system disorder [Unknown]
  - Extrapyramidal disorder [Unknown]
  - Dyskinesia [Unknown]
  - Dyskinesia [Unknown]
  - Activities of daily living impaired [Unknown]
  - Oral disorder [Unknown]
  - Dysphagia [Unknown]
  - Speech disorder [Unknown]
  - Disease progression [Unknown]
